FAERS Safety Report 4733813-7 (Version None)
Quarter: 2005Q3

REPORT INFORMATION
  Report Type: 
  Country: None (occurrence: None)
  Receive Date: 20050729
  Receipt Date: 20050708
  Transmission Date: 20060218
  Serious: No
  Sender: FDA-Public Use
  Company Number: FR_050706807

PATIENT
  Age: 46 Year
  Sex: Female

DRUGS (7)
  1. ZYPREXA [Suspect]
     Indication: BIPOLAR DISORDER
  2. LORAZEPAM [Concomitant]
  3. MIRTAZAPINE [Concomitant]
  4. STILNOX(ZOLIPIDEM TARTRATE) [Concomitant]
  5. DEBRIDAT(TRIMEBUTINE MALEATE) [Concomitant]
  6. MOTILIUM(DOMPERIDONE MALEATE) [Concomitant]
  7. POTASSIUM CHLORIDE [Concomitant]

REACTIONS (2)
  - ANAEMIA [None]
  - PLATELET COUNT DECREASED [None]
